FAERS Safety Report 6421672-6 (Version None)
Quarter: 2009Q4

REPORT INFORMATION
  Report Type: 
  Country: None (occurrence: None)
  Receive Date: 20091029
  Receipt Date: 20091029
  Transmission Date: 20100525
  Serious: Yes (Other)
  Sender: FDA-Public Use
  Company Number: None

PATIENT
  Age: 75 Year
  Sex: Female
  Weight: 61.2356 kg

DRUGS (1)
  1. TOVIAZ [Suspect]
     Indication: MICTURITION URGENCY
     Dates: start: 20090626, end: 20090702

REACTIONS (5)
  - CONSTIPATION [None]
  - ILEUS PARALYTIC [None]
  - MENTAL DISORDER [None]
  - STRESS [None]
  - UNEVALUABLE EVENT [None]
